FAERS Safety Report 7210678-5 (Version None)
Quarter: 2011Q1

REPORT INFORMATION
  Report Type: 
  Country: None (occurrence: None)
  Receive Date: 20110105
  Receipt Date: 20101229
  Transmission Date: 20110831
  Serious: Yes (Other)
  Sender: FDA-Public Use
  Company Number: US-PFIZER INC-2010181813

PATIENT
  Sex: Male

DRUGS (3)
  1. LISINOPRIL [Suspect]
     Dosage: 40 MG, UNK
  2. AMLODIPINE BESYLATE [Suspect]
     Dosage: 10 MG, UNK
  3. LISINOPRIL [Suspect]
     Dosage: 20 MG, UNK

REACTIONS (1)
  - BLOOD PRESSURE INADEQUATELY CONTROLLED [None]
